FAERS Safety Report 5584125-3 (Version None)
Quarter: 2008Q1

REPORT INFORMATION
  Report Type: 
  Country: None (occurrence: None)
  Receive Date: 20080108
  Receipt Date: 20080103
  Transmission Date: 20080703
  Serious: Yes (Hospitalization)
  Sender: FDA-Public Use
  Company Number: SE-ASTRAZENECA-2008SE00055

PATIENT
  Age: 62 Year
  Sex: Male

DRUGS (14)
  1. ATACAND [Suspect]
     Indication: ESSENTIAL HYPERTENSION
     Route: 048
     Dates: end: 20071001
  2. METOPROLOL SUCCINATE [Suspect]
     Indication: ESSENTIAL HYPERTENSION
     Route: 048
     Dates: end: 20071001
  3. LANSOPRAZOLE [Concomitant]
  4. EPREX [Concomitant]
  5. MOVICOL [Concomitant]
  6. POSTAFEN [Concomitant]
  7. WARAN [Concomitant]
  8. STESOLID [Concomitant]
  9. DIGOXIN [Concomitant]
  10. ZYLORIC [Concomitant]
  11. ETALPHA [Concomitant]
  12. FURIX [Concomitant]
  13. PANOCOD [Concomitant]
  14. SIRDALUD [Concomitant]

REACTIONS (1)
  - HYPOTENSION [None]
